FAERS Safety Report 21326260 (Version 1)
Quarter: 2022Q3

REPORT INFORMATION
  Report Type: Spontaneous
  Country: US (occurrence: US)
  Receive Date: 20220913
  Receipt Date: 20220913
  Transmission Date: 20221027
  Serious: No
  Sender: FDA-Public Use
  Company Number: US-BRISTOL-MYERS SQUIBB COMPANY-2022-095652

PATIENT
  Age: 63 Year
  Sex: Female
  Weight: 50.8 kg

DRUGS (3)
  1. ELIQUIS [Suspect]
     Active Substance: APIXABAN
     Indication: Deep vein thrombosis
     Dosage: DOSE : 10 MG;     FREQ : TWICE DAILY
     Route: 065
     Dates: start: 20220821
  2. Fiorina [Concomitant]
     Indication: Product used for unknown indication
  3. Esterase [Concomitant]
     Indication: Product used for unknown indication

REACTIONS (6)
  - Chest pain [Unknown]
  - Palpitations [Unknown]
  - Migraine [Unknown]
  - Tremor [Unknown]
  - Pain in extremity [Unknown]
  - Anxiety [Unknown]

NARRATIVE: CASE EVENT DATE: 20220821
